FAERS Safety Report 9437085 (Version 1)
Quarter: 2013Q3

REPORT INFORMATION
  Report Type: Spontaneous
  Country: ZA (occurrence: ZA)
  Receive Date: 20130802
  Receipt Date: 20130802
  Transmission Date: 20140515
  Serious: Yes (Other)
  Sender: FDA-Public Use
  Company Number: ZA-ASTELLAS-2013EU006329

PATIENT
  Sex: Male

DRUGS (1)
  1. VESICARE [Suspect]
     Indication: URGE INCONTINENCE
     Dosage: 5 MG, UNKNOWN/D
     Route: 048

REACTIONS (5)
  - Intentional drug misuse [Unknown]
  - Cognitive disorder [Recovered/Resolved]
  - Lethargy [Recovered/Resolved]
  - Depression [Recovered/Resolved]
  - Dry mouth [Recovered/Resolved]
